FAERS Safety Report 17046861 (Version 5)
Quarter: 2020Q4

REPORT INFORMATION
  Report Type: Spontaneous
  Country: FR (occurrence: FR)
  Receive Date: 20191119
  Receipt Date: 20201112
  Transmission Date: 20210113
  Serious: Yes (Other)
  Sender: FDA-Public Use
  Company Number: FR-SA-2019SA317449

PATIENT

DRUGS (7)
  1. CORTICOSTEROID NOS [Concomitant]
     Active Substance: CORTICOSTEROID NOS
     Dosage: UNK;AT THE DOSAGE LOWER TO 20 MG
     Dates: start: 2018
  2. DUPIXENT [Suspect]
     Active Substance: DUPILUMAB
     Indication: DERMATITIS ATOPIC
     Dosage: 600 MG, 1X
     Route: 058
     Dates: start: 201903, end: 201903
  3. PROTOPIC [Concomitant]
     Active Substance: TACROLIMUS
     Indication: PRURITUS
  4. DUPIXENT [Suspect]
     Active Substance: DUPILUMAB
     Indication: PRURITUS
     Dosage: 300 MG, QOW
     Route: 058
     Dates: start: 2019, end: 201908
  5. PROTOPIC [Concomitant]
     Active Substance: TACROLIMUS
     Indication: DERMATOSIS
     Dosage: UNK
     Route: 061
  6. NEORAL [Concomitant]
     Active Substance: CYCLOSPORINE
     Indication: ECZEMA
     Dosage: 350 MG, QD
     Route: 048
     Dates: start: 201812, end: 201908
  7. CORTICOSTEROID NOS [Concomitant]
     Active Substance: CORTICOSTEROID NOS
     Indication: PRURITUS
     Dosage: 0.5 MG/KG, QD;DECREASED WITHIN A FEW WEEKS

REACTIONS (10)
  - Dry skin [Recovered/Resolved]
  - Drug ineffective [Recovering/Resolving]
  - Disease progression [Recovered/Resolved]
  - Skin plaque [Recovering/Resolving]
  - Pruritus [Recovering/Resolving]
  - Lymphocytosis [Recovered/Resolved]
  - Eczema asteatotic [Recovered/Resolved]
  - Lichenification [Recovered/Resolved]
  - Palmoplantar keratoderma [Recovered/Resolved]
  - Cutaneous T-cell lymphoma [Recovering/Resolving]

NARRATIVE: CASE EVENT DATE: 2019
